FAERS Safety Report 6085433-2 (Version None)
Quarter: 2009Q1

REPORT INFORMATION
  Report Type: 
  Country: None (occurrence: None)
  Receive Date: 20090217
  Receipt Date: 20080321
  Transmission Date: 20090719
  Serious: No
  Sender: FDA-Public Use
  Company Number: 08H-163-0314057-00

PATIENT

DRUGS (1)
  1. PRECEDEX [Suspect]
     Indication: SEDATION
     Dosage: 4MCG/ML, NTRAVENOUS
     Route: 042
     Dates: start: 20080321, end: 20080321

REACTIONS (2)
  - HYPOTENSION [None]
  - INFUSION SITE EXTRAVASATION [None]
